FAERS Safety Report 7882791-0 (Version None)
Quarter: 2011Q4

REPORT INFORMATION
  Report Type: 
  Country: None (occurrence: None)
  Receive Date: 20111101
  Receipt Date: 20110620
  Transmission Date: 20120403
  Serious: No
  Sender: FDA-Public Use
  Company Number: US-AMGEN-USASP2011028839

PATIENT
  Age: 54 Year
  Sex: Female

DRUGS (2)
  1. SULFASALAZINE [Concomitant]
     Dosage: 1 MG, QD
     Dates: start: 20090101
  2. ENBREL [Suspect]
     Indication: RHEUMATOID ARTHRITIS
     Dosage: 50 MG, QWK
     Dates: start: 20100901

REACTIONS (3)
  - OEDEMA PERIPHERAL [None]
  - MUSCULOSKELETAL STIFFNESS [None]
  - DRUG EFFECT DECREASED [None]
